FAERS Safety Report 6642574-6 (Version None)
Quarter: 2010Q1

REPORT INFORMATION
  Report Type: 
  Country: None (occurrence: None)
  Receive Date: 20100319
  Receipt Date: 20091223
  Transmission Date: 20100710
  Serious: No
  Sender: FDA-Public Use
  Company Number: A0836715A

PATIENT
  Age: 65 Year
  Sex: Male

DRUGS (2)
  1. PROMACTA [Suspect]
     Indication: IDIOPATHIC THROMBOCYTOPENIC PURPURA
     Dosage: 25MG PER DAY
     Route: 048
     Dates: start: 20091220
  2. WINRHO SD [Concomitant]

REACTIONS (1)
  - PLATELET COUNT DECREASED [None]
